FAERS Safety Report 6715627-1 (Version None)
Quarter: 2010Q2

REPORT INFORMATION
  Report Type: 
  Country: None (occurrence: None)
  Receive Date: 20100507
  Receipt Date: 20100324
  Transmission Date: 20101027
  Serious: No
  Sender: FDA-Public Use
  Company Number: A0852928A

PATIENT
  Sex: Female

DRUGS (1)
  1. RETROVIR [Suspect]
     Indication: ANTIVIRAL PROPHYLAXIS
     Dosage: 180MG SINGLE DOSE
     Route: 042
     Dates: start: 20100324, end: 20100324

REACTIONS (2)
  - DRUG EXPOSURE DURING PREGNANCY [None]
  - INCORRECT DRUG ADMINISTRATION RATE [None]
